FAERS Safety Report 10447301 (Version 1)
Quarter: 2014Q3

REPORT INFORMATION
  Report Type: Spontaneous
  Country: JP (occurrence: None)
  Receive Date: 20140909
  Receipt Date: 20140909
  Transmission Date: 20150326
  Serious: Yes (Hospitalization)
  Sender: FDA-Public Use
  Company Number: JP-016997

PATIENT
  Age: 64 Year
  Sex: Male

DRUGS (3)
  1. OXYCONTIN [Concomitant]
     Active Substance: OXYCODONE HYDROCHLORIDE
  2. DEGARELIX (GONAX) 80MG [Suspect]
     Active Substance: DEGARELIX
     Indication: PROSTATE CANCER
     Dosage: DOSING REGIMEN NOT PROVIDED
     Route: 058
     Dates: start: 20140728
  3. XTANDI [Suspect]
     Active Substance: ENZALUTAMIDE
     Indication: PROSTATE CANCER
     Route: 048
     Dates: start: 20140813

REACTIONS (5)
  - Intentional product misuse [None]
  - Malaise [None]
  - Vomiting [None]
  - Asthenia [None]
  - Nausea [None]

NARRATIVE: CASE EVENT DATE: 20140822
